FAERS Safety Report 16326136 (Version 3)
Quarter: 2019Q2

REPORT INFORMATION
  Report Type: Spontaneous
  Country: US (occurrence: US)
  Receive Date: 20190517
  Receipt Date: 20190605
  Transmission Date: 20190711
  Serious: Yes (Other)
  Sender: FDA-Public Use
  Company Number: US-ACTELION-A-US2019-189785

PATIENT
  Age: 59 Year
  Sex: Male
  Weight: 113.38 kg

DRUGS (2)
  1. OPSUMIT [Suspect]
     Active Substance: MACITENTAN
     Indication: PULMONARY ARTERIAL HYPERTENSION
     Dosage: 10 MG, QD
     Route: 048
  2. TADALAFIL. [Concomitant]
     Active Substance: TADALAFIL

REACTIONS (6)
  - Fatigue [Recovering/Resolving]
  - Dialysis [Unknown]
  - Abdominal pain upper [Recovered/Resolved]
  - Memory impairment [Unknown]
  - Headache [Unknown]
  - Dyspnoea [Recovering/Resolving]

NARRATIVE: CASE EVENT DATE: 20190417
